FAERS Safety Report 15534061 (Version 1)
Quarter: 2018Q4

REPORT INFORMATION
  Report Type: Report from Study
  Country: ES (occurrence: ES)
  Receive Date: 20181019
  Receipt Date: 20181019
  Transmission Date: 20190205
  Serious: Yes (Death, Other)
  Sender: FDA-Public Use
  Company Number: ES-MYLANLABS-2018M1078894

PATIENT
  Age: 61 Year
  Sex: Male

DRUGS (1)
  1. TACROLIMUS. [Suspect]
     Active Substance: TACROLIMUS
     Indication: RENAL TRANSPLANT
     Dosage: UNK, QD, 3 UNSPECIFIED UNIT, ONCE DAILY
     Route: 065
     Dates: start: 20170228

REACTIONS (1)
  - Gastric neoplasm [Fatal]

NARRATIVE: CASE EVENT DATE: 20171004
